FAERS Safety Report 6669642-7 (Version None)
Quarter: 2010Q2

REPORT INFORMATION
  Report Type: 
  Country: None (occurrence: None)
  Receive Date: 20100406
  Receipt Date: 20050708
  Transmission Date: 20101027
  Serious: Yes (Other)
  Sender: FDA-Public Use
  Company Number: JP-PFIZER INC-2005103825

PATIENT
  Age: 74 Year
  Sex: Male

DRUGS (6)
  1. CORTRIL [Suspect]
     Indication: ADRENAL INSUFFICIENCY
     Route: 048
  2. SULPERAZON [Suspect]
     Indication: INFECTION
     Route: 042
     Dates: start: 20050627, end: 20050703
  3. UNASYN [Suspect]
     Indication: ILL-DEFINED DISORDER
     Route: 042
     Dates: start: 20050704, end: 20050710
  4. SAXIZON [Concomitant]
     Route: 042
  5. THYRADIN-S [Concomitant]
     Route: 048
  6. MAGNESIUM OXIDE [Concomitant]
     Route: 048

REACTIONS (3)
  - BLOOD CORTISOL DECREASED [None]
  - GENERAL PHYSICAL HEALTH DETERIORATION [None]
  - INFLAMMATION [None]
